FAERS Safety Report 4986455-2 (Version None)
Quarter: 2006Q2

REPORT INFORMATION
  Report Type: 
  Country: None (occurrence: None)
  Receive Date: 20060428
  Receipt Date: 20060207
  Transmission Date: 20061013
  Serious: Yes (Hospitalization)
  Sender: FDA-Public Use
  Company Number: JP-ROCHE-436036

PATIENT
  Age: 39 Year
  Sex: Male

DRUGS (5)
  1. TAMIFLU [Suspect]
     Route: 048
     Dates: start: 20060124, end: 20060124
  2. TAMIFLU [Suspect]
     Route: 048
     Dates: start: 20060125, end: 20060129
  3. NIFLAN [Suspect]
     Indication: PYREXIA
     Dosage: ORAL FORMULATION (NOT OTHERWISE SPECIFIED).
     Route: 048
     Dates: start: 20060124, end: 20060128
  4. NIFLAN [Suspect]
     Route: 048
     Dates: start: 20060128, end: 20060129
  5. PL [Concomitant]
     Route: 048
     Dates: start: 20060124

REACTIONS (4)
  - DERMATITIS ALLERGIC [None]
  - HAEMODIALYSIS [None]
  - RASH [None]
  - RENAL FAILURE ACUTE [None]
